FAERS Safety Report 5285495-6 (Version None)
Quarter: 2007Q1

REPORT INFORMATION
  Report Type: 
  Country: None (occurrence: None)
  Receive Date: 20070328
  Receipt Date: 20070319
  Transmission Date: 20070707
  Serious: Yes (Hospitalization)
  Sender: FDA-Public Use
  Company Number: 2007SP005205

PATIENT
  Age: 56 Year
  Sex: Female
  Weight: 65 kg

DRUGS (11)
  1. PEG-INTRON [Suspect]
     Indication: HEPATITIS C
     Dosage: 96 MCG; QW; SC
     Route: 058
     Dates: start: 20070215, end: 20070315
  2. REBETOL [Suspect]
     Indication: HEPATITIS C
     Dosage: 1000 MG; QD; PO
     Route: 048
     Dates: start: 20070215, end: 20070317
  3. PROCRIT [Suspect]
     Indication: DRUG USE FOR UNKNOWN INDICATION
  4. PROPRANOLOL [Concomitant]
  5. ALDACTONE [Concomitant]
  6. LASIX [Concomitant]
  7. CIPRO [Concomitant]
  8. TYLENOL EXTRA-STRENGTH [Concomitant]
  9. VITAMIN E [Concomitant]
  10. NEUPOGEN [Concomitant]
  11. PRILOSEC [Concomitant]

REACTIONS (4)
  - FRUSTRATION [None]
  - HEPATIC ENCEPHALOPATHY [None]
  - SOMNOLENCE [None]
  - SPEECH DISORDER [None]
